FAERS Safety Report 4543404-9 (Version None)
Quarter: 2005Q1

REPORT INFORMATION
  Report Type: 
  Country: None (occurrence: None)
  Receive Date: 20050103
  Receipt Date: 20030605
  Transmission Date: 20050727
  Serious: Yes (Life-Threatening, Hospitalization, Disabling, Other)
  Sender: FDA-Public Use
  Company Number: US-MERCK-0306USA00815

PATIENT
  Age: 63 Year
  Sex: Female
  Weight: 62 kg

DRUGS (25)
  1. VIOXX [Suspect]
     Indication: OSTEOARTHRITIS
     Route: 048
     Dates: start: 20010401, end: 20010809
  2. VIOXX [Suspect]
     Route: 048
     Dates: start: 20000508
  3. VIOXX [Suspect]
     Route: 048
     Dates: start: 19990817, end: 19990819
  4. VIOXX [Suspect]
     Route: 048
     Dates: start: 19990820, end: 20000507
  5. VALIUM [Concomitant]
     Route: 065
     Dates: start: 19991116
  6. SK-ERYTHROMYCIN [Concomitant]
     Indication: IMPAIRED GASTRIC EMPTYING
     Route: 065
     Dates: start: 20000717
  7. CYANOCOBALAMIN [Concomitant]
     Route: 051
  8. NITROSTAT [Concomitant]
     Route: 065
  9. SYNTHROID [Concomitant]
     Route: 065
  10. PAXIL [Concomitant]
     Route: 065
  11. LANOXIN [Concomitant]
     Route: 065
  12. SALAGEN [Concomitant]
     Route: 065
  13. CLARITIN [Concomitant]
     Route: 065
  14. ZOFRAN [Concomitant]
     Route: 065
  15. MIACALCIN [Concomitant]
     Route: 065
  16. NEURONTIN [Concomitant]
     Route: 065
  17. VITAMIN E [Concomitant]
     Route: 065
  18. PREMARIN [Concomitant]
     Route: 065
  19. ACIPHEX [Concomitant]
     Route: 065
  20. DETROL LA [Concomitant]
     Route: 065
  21. LASIX [Concomitant]
     Route: 065
  22. K-DUR [Concomitant]
     Route: 065
  23. LORAZEPAM [Concomitant]
     Route: 065
  24. PRIMIDONE [Concomitant]
     Route: 065
  25. [THERAPY UNSPECIFIED] [Concomitant]
     Route: 065

REACTIONS (57)
  - ABDOMINAL DISTENSION [None]
  - ABDOMINAL PAIN [None]
  - ABSCESS LIMB [None]
  - ADHESION [None]
  - ADRENAL INSUFFICIENCY [None]
  - ADVERSE EVENT [None]
  - AMNESIA [None]
  - ANXIETY [None]
  - AXILLARY MASS [None]
  - BLOOD CHOLESTEROL INCREASED [None]
  - BLOOD GLUCOSE INCREASED [None]
  - BREAST CANCER [None]
  - CELLULITIS [None]
  - CEREBRAL VENTRICLE DILATATION [None]
  - CHEST DISCOMFORT [None]
  - CHEST PAIN [None]
  - CONNECTIVE TISSUE DISORDER [None]
  - CONTUSION [None]
  - CORONARY ARTERY DISEASE [None]
  - CSF SHUNT REMOVAL [None]
  - CYST ASPIRATION [None]
  - DEPRESSION [None]
  - DIARRHOEA [None]
  - DISCOMFORT [None]
  - DIZZINESS [None]
  - DYSPEPSIA [None]
  - DYSPNOEA [None]
  - EYE INJURY [None]
  - FALL [None]
  - GASTRITIS [None]
  - GASTROENTERITIS [None]
  - HAEMORRHOIDS [None]
  - HELICOBACTER GASTRITIS [None]
  - HYDROCEPHALUS [None]
  - HYPERLIPIDAEMIA [None]
  - HYPOTHYROIDISM [None]
  - IMPAIRED GASTRIC EMPTYING [None]
  - INCREASED TENDENCY TO BRUISE [None]
  - INTESTINAL HYPOMOTILITY [None]
  - IRON DEFICIENCY ANAEMIA [None]
  - JOINT INJURY [None]
  - LIMB INJURY [None]
  - MYOCARDIAL INFARCTION [None]
  - NAUSEA [None]
  - NORMAL PRESSURE HYDROCEPHALUS [None]
  - OEDEMA PERIPHERAL [None]
  - PAIN IN EXTREMITY [None]
  - RADICULAR PAIN [None]
  - ROAD TRAFFIC ACCIDENT [None]
  - SCLERODERMA [None]
  - SHUNT INFECTION [None]
  - SPINAL COMPRESSION FRACTURE [None]
  - TINNITUS [None]
  - TRANSAMINASES INCREASED [None]
  - VERTIGO [None]
  - WHEEZING [None]
  - WOUND DEHISCENCE [None]
